FAERS Safety Report 6521371-6 (Version None)
Quarter: 2009Q4

REPORT INFORMATION
  Report Type: 
  Country: None (occurrence: None)
  Receive Date: 20091230
  Receipt Date: 20091216
  Transmission Date: 20100525
  Serious: Yes (Other)
  Sender: FDA-Public Use
  Company Number: US-BAYER-200942991NA

PATIENT
  Age: 49 Year
  Sex: Female

DRUGS (3)
  1. BETASERON [Suspect]
     Indication: DRUG USE FOR UNKNOWN INDICATION
     Route: 058
  2. AVONEX [Concomitant]
     Dosage: 30 MCG
     Route: 030
     Dates: start: 19990101, end: 20010101
  3. AVONEX [Concomitant]
     Dosage: 30 MCG
     Route: 030
     Dates: start: 20020101, end: 20030101

REACTIONS (2)
  - BREAST CANCER [None]
  - BREAST CANCER STAGE IV [None]
